FAERS Safety Report 10738509 (Version 1)
Quarter: 2015Q1

REPORT INFORMATION
  Report Type: Report from Study
  Country: GR (occurrence: GR)
  Receive Date: 20150126
  Receipt Date: 20150126
  Transmission Date: 20150721
  Serious: Yes (Hospitalization)
  Sender: FDA-Public Use
  Company Number: GR-GLAXOSMITHKLINE-Z0022460A

PATIENT
  Age: 76 Year
  Sex: Male
  Weight: 81 kg

DRUGS (7)
  1. BLINDED ELTROMBOPAG [Suspect]
     Active Substance: ELTROMBOPAG
     Indication: THROMBOCYTOPENIA
     Dosage: UNK, 1D
     Route: 048
     Dates: start: 20130604, end: 20130904
  2. HYDREA [Suspect]
     Active Substance: HYDROXYUREA
     Indication: BLAST CELL COUNT INCREASED
     Dosage: 1 G, 1D
     Route: 048
     Dates: start: 20140327, end: 20140405
  3. PLACEBO [Suspect]
     Active Substance: UNSPECIFIED INGREDIENT
     Indication: THROMBOCYTOPENIA
     Dosage: UNK, 1D
     Route: 048
     Dates: start: 20130604, end: 20130904
  4. BLINDED ELTROMBOPAG [Suspect]
     Active Substance: ELTROMBOPAG
     Indication: THROMBOCYTOPENIA
     Dosage: UNK, 1D
     Route: 048
     Dates: start: 20130604, end: 20130904
  5. PLACEBO [Suspect]
     Active Substance: UNSPECIFIED INGREDIENT
     Indication: THROMBOCYTOPENIA
     Dosage: UNK, 1D
     Route: 048
     Dates: start: 20130604, end: 20130904
  6. ELTROMBOPAG [Suspect]
     Active Substance: ELTROMBOPAG
     Indication: THROMBOCYTOPENIA
     Dosage: 100 MG, QD
     Route: 048
     Dates: start: 20130905
  7. BLINDED NO THERAPY [Suspect]
     Active Substance: UNSPECIFIED INGREDIENT
     Indication: THROMBOCYTOPENIA
     Dosage: UNK, 1D
     Route: 048
     Dates: start: 20130604, end: 20130904

REACTIONS (1)
  - Diarrhoea [Recovered/Resolved]

NARRATIVE: CASE EVENT DATE: 20140403
